FAERS Safety Report 10256243 (Version 2)
Quarter: 2014Q3

REPORT INFORMATION
  Report Type: Report from Study
  Country: US (occurrence: US)
  Receive Date: 20140624
  Receipt Date: 20140708
  Transmission Date: 20150326
  Serious: Yes (Hospitalization, Other)
  Sender: FDA-Public Use
  Company Number: US-TAKEDA-2014MPI001727

PATIENT
  Age: 36 Year
  Sex: Female
  Weight: 127.3 kg

DRUGS (7)
  1. MLN0002 [Suspect]
     Active Substance: VEDOLIZUMAB
     Indication: CROHN^S DISEASE
     Dosage: 300 MG, Q4WEEKS
     Route: 042
     Dates: start: 20110707
  2. NOVOLOG [Concomitant]
     Active Substance: INSULIN ASPART
     Indication: CROHN^S DISEASE
     Dates: start: 20140501
  3. CHOLESTYRAMINE. [Concomitant]
     Active Substance: CHOLESTYRAMINE
     Dosage: UNK G, UNK
     Dates: start: 20140319
  4. LORATADINE. [Concomitant]
     Active Substance: LORATADINE
     Dosage: 10 MG, TABLET
     Route: 048
     Dates: start: 20140422
  5. FENOFIBRATE. [Concomitant]
     Active Substance: FENOFIBRATE
     Dosage: 180 MG, TABLET
     Route: 048
     Dates: start: 20140612
  6. CITALOPRAM HYDROBROMIDE. [Concomitant]
     Active Substance: CITALOPRAM HYDROBROMIDE
     Dosage: 40 MG, TABLET
     Route: 048
     Dates: start: 20140218
  7. LANTUS [Concomitant]
     Active Substance: INSULIN GLARGINE
     Dosage: 100 UNITS/ML
     Dates: start: 20140502

REACTIONS (1)
  - Abdominal hernia obstructive [Recovered/Resolved with Sequelae]

NARRATIVE: CASE EVENT DATE: 20140614
